FAERS Safety Report 6810933-4 (Version None)
Quarter: 2010Q2

REPORT INFORMATION
  Report Type: 
  Country: None (occurrence: None)
  Receive Date: 20100630
  Receipt Date: 20080925
  Transmission Date: 20101027
  Serious: No
  Sender: FDA-Public Use
  Company Number: US-PFIZER INC-2008071414

PATIENT
  Sex: Female
  Weight: 96.363 kg

DRUGS (10)
  1. NICOTROL [Suspect]
     Indication: SMOKING CESSATION THERAPY
     Dates: start: 20080822
  2. CEPHALEXIN [Concomitant]
     Dates: start: 20080819
  3. METFORMIN HCL [Concomitant]
  4. DRUG, UNSPECIFIED [Concomitant]
  5. AMLODIPINE [Concomitant]
  6. TENORETIC 100 [Concomitant]
     Route: 048
  7. CENTRUM [Concomitant]
  8. ENALAPRIL MALEATE [Concomitant]
     Route: 048
  9. PLAVIX [Concomitant]
  10. INSULIN [Concomitant]

REACTIONS (2)
  - COUGH [None]
  - DRUG INEFFECTIVE [None]
